FAERS Safety Report 5273372-6 (Version None)
Quarter: 2007Q1

REPORT INFORMATION
  Report Type: 
  Country: None (occurrence: None)
  Receive Date: 20070320
  Receipt Date: 20070309
  Transmission Date: 20070707
  Serious: Yes (Hospitalization, Other)
  Sender: FDA-Public Use
  Company Number: PAR_1423_2007

PATIENT
  Age: 60 Year
  Sex: Female

DRUGS (4)
  1. CLOZAPINE [Suspect]
     Indication: SCHIZOAFFECTIVE DISORDER
     Dosage: 250 MG QDAY
     Dates: start: 20041001, end: 20050101
  2. VALPROATE SODIUM [Concomitant]
  3. VENLAFAXINE HCL [Concomitant]
  4. LEVOTHYROXINE SODIUM [Concomitant]

REACTIONS (3)
  - BLOOD GLUCOSE DECREASED [None]
  - BLOOD PH INCREASED [None]
  - POLYSEROSITIS [None]
